FAERS Safety Report 9359054 (Version 1)
Quarter: 2013Q2

REPORT INFORMATION
  Report Type: Spontaneous
  Country: US (occurrence: US)
  Receive Date: 20130620
  Receipt Date: 20130620
  Transmission Date: 20140414
  Serious: Yes (Hospitalization)
  Sender: FDA-Public Use
  Company Number: US-B.I. PHARMACEUTICALS,INC./RIDGEFIELD-2013-BI-17282BP

PATIENT
  Age: 74 Year
  Sex: Female

DRUGS (19)
  1. PRADAXA [Suspect]
     Indication: CARDIOVASCULAR EVENT PROPHYLAXIS
  2. PRADAXA [Suspect]
     Indication: ATRIAL FIBRILLATION
  3. TRADJENTA [Suspect]
     Indication: TYPE 2 DIABETES MELLITUS
  4. COZAAR [Concomitant]
  5. LIPITOR [Concomitant]
  6. SYNTHROID [Concomitant]
  7. TRAMADOL [Concomitant]
  8. NAMENDA [Concomitant]
  9. FUROSEMIDE [Concomitant]
  10. LUNESTA [Concomitant]
  11. DONEPEZIL [Concomitant]
  12. AMLODIPINE [Concomitant]
  13. DILTIAZEM [Concomitant]
  14. LANTUS [Concomitant]
  15. GABAPENTIN [Concomitant]
  16. TOPAMAX [Concomitant]
  17. METANX [Concomitant]
  18. LOFIBRA [Concomitant]
  19. ROBAXIN [Concomitant]

REACTIONS (3)
  - Haematoma [Recovered/Resolved]
  - Haemorrhage [Recovered/Resolved]
  - Anaemia [Recovered/Resolved]
